FAERS Safety Report 11301258 (Version 1)
Quarter: 2015Q3

REPORT INFORMATION
  Report Type: Spontaneous
  Country: US (occurrence: US)
  Receive Date: 20150722
  Receipt Date: 20150722
  Transmission Date: 20151125
  Serious: No
  Sender: FDA-Public Use
  Company Number: US-ELI_LILLY_AND_COMPANY-US201106007088

PATIENT
  Age: 61 Year
  Sex: Male

DRUGS (9)
  1. MULTIVITAMIN [Concomitant]
     Active Substance: VITAMINS
  2. BENADRYL [Concomitant]
     Active Substance: DIPHENHYDRAMINE HYDROCHLORIDE
     Dosage: UNK, EACH EVENING
  3. ASPIRIN. [Concomitant]
     Active Substance: ASPIRIN
     Dosage: 81 MG, UNK
  4. CRESTOR [Concomitant]
     Active Substance: ROSUVASTATIN CALCIUM
     Dosage: 5 MG, UNK
  5. FISH OIL [Concomitant]
     Active Substance: FISH OIL
     Dosage: 2 DF, UNK
  6. EFFIENT [Suspect]
     Active Substance: PRASUGREL HYDROCHLORIDE
     Indication: STENT PLACEMENT
     Dosage: 10 MG, UNK
     Route: 065
     Dates: start: 201006
  7. SYNTHROID [Concomitant]
     Active Substance: LEVOTHYROXINE SODIUM
     Dosage: 0.1 MG, UNK
  8. NEXIUM [Concomitant]
     Active Substance: ESOMEPRAZOLE MAGNESIUM
     Dosage: UNK, OTHER ( AS NEEDED)
  9. COQ10 [Concomitant]
     Active Substance: UBIDECARENONE

REACTIONS (1)
  - Pain [Unknown]
